FAERS Safety Report 25580877 (Version 1)
Quarter: 2025Q3

REPORT INFORMATION
  Report Type: Spontaneous
  Country: US (occurrence: US)
  Receive Date: 20250718
  Receipt Date: 20250718
  Transmission Date: 20251020
  Serious: No
  Sender: NOVO NORDISK
  Company Number: US-NOVOPROD-1332723

PATIENT
  Sex: Female

DRUGS (1)
  1. WEGOVY [Suspect]
     Active Substance: SEMAGLUTIDE
     Indication: Product used for unknown indication
     Dosage: 0.25 MG, QW
     Route: 058

REACTIONS (6)
  - Mydriasis [Not Recovered/Not Resolved]
  - Injection site discharge [Unknown]
  - Injection site discolouration [Unknown]
  - Injection site bruising [Recovered/Resolved]
  - Off label use [Unknown]
  - Incorrect dose administered by product [Unknown]
